FAERS Safety Report 13444453 (Version 5)
Quarter: 2017Q3

REPORT INFORMATION
  Report Type: Spontaneous
  Country: AT (occurrence: PT)
  Receive Date: 20170414
  Receipt Date: 20170707
  Transmission Date: 20171127
  Serious: Yes (Death, Hospitalization, Other)
  Sender: FDA-Public Use
  Company Number: AT-PFIZER INC-2017160724

PATIENT
  Age: 16 Year
  Sex: Female

DRUGS (2)
  1. MIFEGYNE [Suspect]
     Active Substance: MIFEPRISTONE
     Indication: ABORTION INDUCED
     Dosage: 200 MG, 1X/DAY
     Route: 048
  2. MISOPROSTOL. [Suspect]
     Active Substance: MISOPROSTOL
     Indication: ABORTION INDUCED
     Dosage: 800 UG, 1X/DAY
     Route: 067

REACTIONS (2)
  - Product use in unapproved indication [Unknown]
  - Toxic shock syndrome [Fatal]
